FAERS Safety Report 5917552-2 (Version None)
Quarter: 2008Q4

REPORT INFORMATION
  Report Type: 
  Country: None (occurrence: None)
  Receive Date: 20081010
  Receipt Date: 20081010
  Transmission Date: 20090506
  Serious: No
  Sender: FDA-Public Use
  Company Number: None

PATIENT
  Sex: Female
  Weight: 46.2669 kg

DRUGS (3)
  1. NYSTATIN [Suspect]
     Indication: GASTROINTESTINAL CANDIDIASIS
     Dosage: 1/8 TSP DAILY ORAL
     Route: 048
     Dates: start: 20080920, end: 20080921
  2. MULTI-VITAMINS [Concomitant]
  3. CALCIUM SUPPLEMENTS [Concomitant]

REACTIONS (3)
  - ABDOMINAL DISCOMFORT [None]
  - LACRIMATION INCREASED [None]
  - THROAT IRRITATION [None]
